FAERS Safety Report 6981859-0 (Version None)
Quarter: 2010Q3

REPORT INFORMATION
  Report Type: 
  Country: None (occurrence: None)
  Receive Date: 20100909
  Receipt Date: 20100804
  Transmission Date: 20110219
  Serious: Yes (Other)
  Sender: FDA-Public Use
  Company Number: FKO201000310

PATIENT
  Age: 60 Year
  Sex: Male

DRUGS (1)
  1. METHOTREXATE [Suspect]
     Indication: RHEUMATOID ARTHRITIS
     Dosage: 1.1429 MG, 1 IN 1 WK

REACTIONS (3)
  - BACK PAIN [None]
  - EPSTEIN-BARR VIRUS INFECTION [None]
  - PERIPHERAL T-CELL LYMPHOMA UNSPECIFIED [None]
